FAERS Safety Report 22001743 (Version 2)
Quarter: 2023Q1

REPORT INFORMATION
  Report Type: Spontaneous
  Country: US (occurrence: US)
  Receive Date: 20230216
  Receipt Date: 20230306
  Transmission Date: 20230418
  Serious: Yes (Hospitalization)
  Sender: FDA-Public Use
  Company Number: US-TEVA-2022-US-2074185

PATIENT
  Age: 10 Year
  Sex: Male

DRUGS (9)
  1. DULOXETINE [Suspect]
     Active Substance: DULOXETINE
     Indication: Neuralgia
     Dosage: 30 MILLIGRAM DAILY; EVERY NIGHT
     Route: 065
  2. DULOXETINE [Suspect]
     Active Substance: DULOXETINE
     Indication: Anxiety
  3. DAUNORUBICIN [Suspect]
     Active Substance: DAUNORUBICIN
     Indication: Acute lymphocytic leukaemia
     Route: 065
  4. VINCRISTINE [Suspect]
     Active Substance: VINCRISTINE
     Indication: Acute lymphocytic leukaemia
     Dosage: RECEIVED VINCRISTINE ON DAYS 1, 8, 15 AND 22
     Route: 065
  5. PREDNISONE [Suspect]
     Active Substance: PREDNISONE
     Indication: Acute lymphocytic leukaemia
     Route: 065
  6. METHOTREXATE [Suspect]
     Active Substance: METHOTREXATE
     Indication: Acute lymphocytic leukaemia
     Route: 065
  7. PEGASPARGASE [Suspect]
     Active Substance: PEGASPARGASE
     Indication: Acute lymphocytic leukaemia
     Route: 065
  8. CYTARABINE [Suspect]
     Active Substance: CYTARABINE
     Indication: Acute lymphocytic leukaemia
     Route: 065
  9. LORAZEPAM [Concomitant]
     Active Substance: LORAZEPAM
     Indication: Anxiety
     Dosage: AS NEEDED
     Route: 065

REACTIONS (3)
  - Inappropriate antidiuretic hormone secretion [Recovered/Resolved]
  - Neuralgia [Recovering/Resolving]
  - Anxiety [Recovering/Resolving]
